FAERS Safety Report 11654181 (Version 2)
Quarter: 2015Q4

REPORT INFORMATION
  Report Type: Spontaneous
  Country: US (occurrence: US)
  Receive Date: 20151023
  Receipt Date: 20151104
  Transmission Date: 20160304
  Serious: No
  Sender: FDA-Public Use
  Company Number: US-LEO PHARMA-237473

PATIENT
  Age: 75 Year
  Sex: Male

DRUGS (1)
  1. PICATO [Suspect]
     Active Substance: INGENOL MEBUTATE
     Indication: PROPHYLAXIS
     Dates: start: 20150928, end: 20150930

REACTIONS (6)
  - Application site pain [Recovered/Resolved]
  - Drug administration error [Unknown]
  - Product use issue [Unknown]
  - Application site dryness [Recovered/Resolved]
  - Pain [Recovered/Resolved]
  - Application site exfoliation [Recovered/Resolved]

NARRATIVE: CASE EVENT DATE: 20151001
